FAERS Safety Report 21219364 (Version 1)
Quarter: 2022Q3

REPORT INFORMATION
  Report Type: Spontaneous
  Country: IT (occurrence: IT)
  Receive Date: 20220817
  Receipt Date: 20220817
  Transmission Date: 20221027
  Serious: Yes (Hospitalization, Other)
  Sender: FDA-Public Use
  Company Number: IT-SUN PHARMACEUTICAL INDUSTRIES LTD-2022R1-348861

PATIENT
  Age: 58 Year
  Sex: Male

DRUGS (3)
  1. BACLOFEN [Suspect]
     Active Substance: BACLOFEN
     Indication: Muscle spasticity
     Dosage: 100 MCG, DAILY
     Route: 058
     Dates: start: 2019
  2. BACLOFEN [Suspect]
     Active Substance: BACLOFEN
     Dosage: 250 MCG, DAILY
     Route: 058
     Dates: start: 2019
  3. BACLOFEN [Suspect]
     Active Substance: BACLOFEN
     Dosage: 100 MCG, DAILY
     Route: 058
     Dates: start: 2019

REACTIONS (7)
  - Condition aggravated [Unknown]
  - Sedation [Recovered/Resolved]
  - Unresponsive to stimuli [Unknown]
  - Bradypnoea [Unknown]
  - Blood pressure decreased [Unknown]
  - Oxygen saturation decreased [Unknown]
  - Overdose [Unknown]
